FAERS Safety Report 24324464 (Version 1)
Quarter: 2024Q3

REPORT INFORMATION
  Report Type: Spontaneous
  Country: GB (occurrence: GB)
  Receive Date: 20240916
  Receipt Date: 20240916
  Transmission Date: 20241017
  Serious: Yes (Other)
  Sender: DEXCEL
  Company Number: None

PATIENT
  Age: 50 Year
  Sex: Female
  Weight: 133 kg

DRUGS (2)
  1. OMEPRAZOLE [Suspect]
     Active Substance: OMEPRAZOLE
     Indication: Gastric ulcer
     Dosage: 40MG TWICE DAILY
     Dates: start: 20240720
  2. APIXABAN [Concomitant]
     Active Substance: APIXABAN
     Indication: Thrombosis
     Dates: start: 20240728

REACTIONS (2)
  - Hyperhidrosis [Not Recovered/Not Resolved]
  - Off label use [Unknown]

NARRATIVE: CASE EVENT DATE: 20240810
